FAERS Safety Report 6616331-0 (Version None)
Quarter: 2010Q1

REPORT INFORMATION
  Report Type: 
  Country: None (occurrence: None)
  Receive Date: 20100305
  Receipt Date: 20100224
  Transmission Date: 20100710
  Serious: Yes (Hospitalization)
  Sender: FDA-Public Use
  Company Number: ZA-JNJFOC-20100211139

PATIENT
  Age: 52 Year
  Sex: Female

DRUGS (10)
  1. VERMOX [Suspect]
     Indication: HELMINTHIC INFECTION
     Dosage: ONE TABLET TWICE DAILY FOR 2 DOSES  ONLY
     Route: 048
  2. WARFARIN SODIUM [Suspect]
     Indication: ANTICOAGULANT THERAPY
     Route: 065
  3. ANTI DEPRESSANTS [Concomitant]
     Route: 065
  4. ASTHMA MEDICATION [Concomitant]
     Route: 065
  5. MOLIPAXIN [Concomitant]
     Indication: DEPRESSION
     Route: 065
  6. SINGULAIR [Concomitant]
     Indication: ASTHMA
     Route: 065
  7. NEXIUM [Concomitant]
     Indication: REFLUX OESOPHAGITIS
     Route: 065
  8. PURBAC [Concomitant]
     Indication: ANTIBIOTIC THERAPY
     Route: 065
  9. ELTROXIN [Concomitant]
     Indication: HYPOTHYROIDISM
     Route: 065
  10. VITAMIN TAB [Concomitant]
     Indication: VITAMIN SUPPLEMENTATION
     Route: 065

REACTIONS (4)
  - ABDOMINAL PAIN UPPER [None]
  - CHEST PAIN [None]
  - NAUSEA [None]
  - OVERDOSE [None]
